FAERS Safety Report 19023160 (Version 1)
Quarter: 2021Q1

REPORT INFORMATION
  Report Type: Spontaneous
  Country: IT (occurrence: IT)
  Receive Date: 20210317
  Receipt Date: 20210317
  Transmission Date: 20210420
  Serious: Yes (Other)
  Sender: FDA-Public Use
  Company Number: IT-BAUSCH-BL-2021-007727

PATIENT
  Age: 50 Year
  Sex: Female

DRUGS (5)
  1. RIBAVIRIN. [Suspect]
     Active Substance: RIBAVIRIN
     Indication: CHRONIC HEPATITIS C
     Dosage: LOW?DOSE
     Route: 065
     Dates: start: 2010
  2. RIBAVIRIN. [Suspect]
     Active Substance: RIBAVIRIN
     Dosage: IFN?FREE DAA TREATMENT (12?WEEK COURSE)
     Route: 065
     Dates: start: 201506
  3. PEGYLATED?INTERFERON ALFA 2A [Suspect]
     Active Substance: PEGINTERFERON ALFA-2A
     Indication: CHRONIC HEPATITIS C
     Route: 065
     Dates: start: 2010
  4. RITUXIMAB. [Concomitant]
     Active Substance: RITUXIMAB
     Indication: NEUROPATHY PERIPHERAL
     Dates: start: 200911
  5. RITUXIMAB. [Concomitant]
     Active Substance: RITUXIMAB
     Dosage: DOSAGE: 3 CYCLES
     Dates: end: 201505

REACTIONS (4)
  - Fatigue [Recovering/Resolving]
  - Neuropathy peripheral [Recovering/Resolving]
  - Anaemia [Recovering/Resolving]
  - Influenza like illness [Recovering/Resolving]
